FAERS Safety Report 10257524 (Version 1)
Quarter: 2014Q2

REPORT INFORMATION
  Report Type: Spontaneous
  Country: US (occurrence: US)
  Receive Date: 20140625
  Receipt Date: 20140625
  Transmission Date: 20141212
  Serious: No
  Sender: FDA-Public Use
  Company Number: US-GLAXOSMITHKLINE-A1063721A

PATIENT
  Sex: Female

DRUGS (21)
  1. VERAMYST [Suspect]
     Indication: RHINITIS ALLERGIC
     Dosage: 4SPR TWICE PER DAY
     Route: 045
     Dates: start: 2007
  2. AZELASTINE HYDROCHLORIDE [Suspect]
     Dosage: 4SPR TWICE PER DAY
     Dates: start: 2013
  3. VENTOLIN HFA [Concomitant]
  4. SYMBICORT [Concomitant]
  5. INSULIN [Concomitant]
  6. LEVOTHYROXINE [Concomitant]
  7. OCUVITE [Concomitant]
  8. VITAMIN B1 [Concomitant]
  9. VITAMIN C [Concomitant]
  10. CO Q 10 [Concomitant]
  11. VITAMIN D3 [Concomitant]
  12. GARLIC SUPPLEMENT [Concomitant]
  13. ASPIRIN [Concomitant]
  14. VESICARE [Concomitant]
  15. SINGULAIR [Concomitant]
  16. DILTIAZEM [Concomitant]
  17. ISOSORBIDE MONONITRATE [Concomitant]
  18. DEXTROMETHORPHAN + GUAIFENESIN [Concomitant]
  19. SLEEP AID [Concomitant]
  20. LUNESTA [Concomitant]
  21. VITAMIN B12 [Concomitant]

REACTIONS (6)
  - Asthma [Recovering/Resolving]
  - Dyspnoea [Unknown]
  - Cough [Unknown]
  - Secretion discharge [Unknown]
  - Off label use [Unknown]
  - Drug ineffective [Unknown]
